FAERS Safety Report 8270397 (Version 2)
Quarter: 2013Q2

REPORT INFORMATION
  Report Type: Report from Study
  Country: JP (occurrence: JP)
  Receive Date: 20111201
  Receipt Date: 20130620
  Transmission Date: 20140414
  Serious: Yes (Life-Threatening, Other)
  Sender: FDA-Public Use
  Company Number: JP-GENZYME-THYM-1002933

PATIENT
  Age: 21 Year
  Sex: Male
  Weight: 60 kg

DRUGS (60)
  1. THYMOGLOBULIN [Suspect]
     Indication: APLASTIC ANAEMIA
     Dosage: 200 MG, QD
     Route: 042
     Dates: start: 20091207, end: 20091211
  2. THYMOGLOBULIN [Suspect]
     Indication: BONE MARROW CONDITIONING REGIMEN
     Dosage: 225 MG, QD
     Route: 042
     Dates: start: 20100911, end: 20100914
  3. RABEPRAZOLE SODIUM [Concomitant]
     Indication: PROPHYLAXIS
     Dosage: UNK
     Route: 065
     Dates: start: 20100917, end: 20101026
  4. URSODEOXYCHOLIC ACID [Concomitant]
     Indication: LIVER DISORDER
     Dosage: UNK
     Route: 065
     Dates: start: 20100917
  5. PREDNISOLON [Concomitant]
     Indication: PREMEDICATION
     Dosage: UNK
     Route: 065
     Dates: start: 20100917, end: 20101026
  6. AMPHOTERICIN B [Concomitant]
     Indication: MENINGITIS
     Dosage: UNK
     Route: 065
     Dates: start: 20100917, end: 20101227
  7. AMPHOTERICIN B [Concomitant]
     Indication: CANDIDA INFECTION
     Dosage: UNK
     Dates: start: 20100917, end: 20101009
  8. AMPHOTERICIN B [Concomitant]
     Indication: ASPERGILLUS INFECTION
  9. VANCOMYCIN [Concomitant]
     Indication: INFECTION PROPHYLAXIS
     Dosage: UNK
     Route: 065
     Dates: start: 20100917, end: 20101012
  10. VANCOMYCIN [Concomitant]
     Dosage: UNK
     Dates: start: 20100917, end: 20101111
  11. SULFAMETHOPRIM [Concomitant]
     Indication: INFECTION PROPHYLAXIS
     Dosage: UNK
     Route: 065
     Dates: start: 20100917
  12. ACICLOVIR [Concomitant]
     Indication: MENINGITIS
     Dosage: UNK
     Route: 065
     Dates: start: 20100917, end: 20110111
  13. ACICLOVIR [Concomitant]
     Indication: CANDIDA INFECTION
  14. ACICLOVIR [Concomitant]
     Indication: ASPERGILLUS INFECTION
  15. TACROLIMUS [Concomitant]
     Indication: PROPHYLAXIS AGAINST GRAFT VERSUS HOST DISEASE
     Dosage: UNK
     Dates: start: 20100917
  16. TACROLIMUS [Concomitant]
     Dosage: UNK
     Dates: start: 20101021, end: 20101122
  17. MEROPENEM TRIHYDRATE [Concomitant]
     Indication: INFECTION PROPHYLAXIS
     Dosage: UNK
     Route: 065
     Dates: start: 20100917, end: 20101102
  18. DEFEROXAMINE MESILATE [Concomitant]
     Indication: PROPHYLAXIS
     Dosage: UNK
     Route: 065
     Dates: start: 20100917, end: 20101126
  19. DANAPAROID SODIUM [Concomitant]
     Indication: PROPHYLAXIS
     Dosage: UNK
     Route: 065
     Dates: start: 20100917, end: 20101124
  20. HYDROXYZINE HYDROCHLORIDE [Concomitant]
     Indication: PREMEDICATION
     Dosage: UNK
     Route: 065
     Dates: start: 20100917, end: 20100917
  21. METHYLPREDNISOLONE SODIUM SUCCINATE [Concomitant]
     Indication: PROPHYLAXIS AGAINST GRAFT VERSUS HOST DISEASE
     Dosage: UNK
     Route: 065
     Dates: start: 20100917, end: 20100917
  22. METHYLPREDNISOLONE SODIUM SUCCINATE [Concomitant]
     Indication: PREMEDICATION
     Dosage: UNK
     Dates: start: 20100911, end: 20100914
  23. FOSFOMYCIN SODIUM [Concomitant]
     Indication: INFECTION PROPHYLAXIS
     Dosage: UNK
     Route: 065
     Dates: start: 20100917, end: 20101010
  24. METHOTREXATE [Concomitant]
     Indication: PROPHYLAXIS AGAINST GRAFT VERSUS HOST DISEASE
     Dosage: UNK
     Route: 065
     Dates: start: 20100918, end: 20100923
  25. FLURBIPROFEN AXETIL [Concomitant]
     Indication: PROPHYLAXIS AGAINST GRAFT VERSUS HOST DISEASE
     Dosage: UNK
     Route: 065
     Dates: start: 20100918, end: 20101024
  26. HYDROCORTISONE SODIUM SUCCINATE [Concomitant]
     Indication: PROPHYLAXIS AGAINST GRAFT VERSUS HOST DISEASE
     Dosage: UNK
     Route: 065
     Dates: start: 20100919, end: 20110106
  27. HYDROCORTISONE SODIUM SUCCINATE [Concomitant]
     Indication: PREMEDICATION
  28. FILGRASTIM [Concomitant]
     Indication: APLASTIC ANAEMIA
     Dosage: UNK
     Route: 065
     Dates: start: 20100919, end: 20101008
  29. FILGRASTIM [Concomitant]
     Dosage: UNK
     Dates: start: 20101009, end: 20101220
  30. MINOCYCLINE HYDROCHLORIDE [Concomitant]
     Indication: INFECTION PROPHYLAXIS
     Dosage: UNK
     Route: 065
     Dates: start: 20100919, end: 20101026
  31. GLYCYRRHIZIN GLYCINE CYSTEINE COMBINED DRUG [Concomitant]
     Indication: LIVER DISORDER
     Dosage: UNK
     Route: 065
     Dates: start: 20100926, end: 20101202
  32. FLUCONAZOLE [Concomitant]
     Indication: INFECTION PROPHYLAXIS
     Dosage: UNK
     Route: 065
  33. FLUCONAZOLE [Concomitant]
     Indication: MENINGITIS
  34. FLUCONAZOLE [Concomitant]
     Indication: CANDIDA INFECTION
  35. FLUCONAZOLE [Concomitant]
     Indication: ASPERGILLUS INFECTION
  36. CEFCAPENE PIVOXIL HYDROCHLORIDE [Concomitant]
     Indication: INFECTION PROPHYLAXIS
     Dosage: UNK
     Route: 065
     Dates: start: 20101012, end: 20110118
  37. AMIKACIN SULFATE [Concomitant]
     Indication: MENINGITIS
     Dosage: UNK
     Route: 065
     Dates: start: 20100917, end: 20101010
  38. AMIKACIN SULFATE [Concomitant]
     Indication: CANDIDA INFECTION
  39. AMIKACIN SULFATE [Concomitant]
     Indication: ASPERGILLUS INFECTION
  40. GLYCYRRHIZIC ACID DL-METHIONINE COMBINED DRUG [Concomitant]
     Indication: PROPHYLAXIS
     Dosage: UNK
     Route: 065
     Dates: start: 20101019, end: 20101026
  41. LOXOPROFEN SODIUM [Concomitant]
     Indication: PROPHYLAXIS
     Dosage: UNK
     Route: 065
     Dates: start: 20101020, end: 20101112
  42. DIPHENHYDRAMINE DIPROPHYLLINE [Concomitant]
     Indication: PROPHYLAXIS
     Dosage: UNK
     Route: 065
     Dates: start: 20101030, end: 20101214
  43. DIPHENHYDRAMINE DIPROPHYLLINE [Concomitant]
     Indication: MENINGITIS
  44. DIPHENHYDRAMINE DIPROPHYLLINE [Concomitant]
     Indication: CANDIDA INFECTION
  45. DIPHENHYDRAMINE DIPROPHYLLINE [Concomitant]
     Indication: ASPERGILLUS INFECTION
  46. CEFOZOPRAN HYDROCHLORIDE [Concomitant]
     Indication: INFECTION PROPHYLAXIS
     Dosage: UNK
     Route: 065
     Dates: start: 20101018, end: 20110108
  47. FOSCARNET SODIUM [Concomitant]
     Indication: INFECTION PROPHYLAXIS
     Dosage: UNK
     Route: 065
     Dates: start: 20101018, end: 20101021
  48. GANCICLOVIR [Concomitant]
     Indication: INFECTION PROPHYLAXIS
     Dosage: UNK
     Route: 065
     Dates: start: 20101021, end: 20101115
  49. MICAFUNGIN SODIUM [Concomitant]
     Indication: MENINGITIS
     Dosage: UNK
     Route: 065
     Dates: start: 20101022, end: 20110108
  50. MICAFUNGIN SODIUM [Concomitant]
     Indication: CANDIDA INFECTION
  51. MICAFUNGIN SODIUM [Concomitant]
     Indication: ASPERGILLUS INFECTION
  52. PENTAMIDINE ISETHIONATE [Concomitant]
     Indication: INFECTION PROPHYLAXIS
     Dosage: UNK
     Route: 065
     Dates: start: 20101023, end: 20101101
  53. ACETAMINOPHEN [Concomitant]
     Indication: PROPHYLAXIS
     Dosage: UNK
     Route: 065
     Dates: start: 20101104, end: 20101214
  54. VALGANCICLOVIR HYDROCHLORIDE [Concomitant]
     Indication: INFECTION PROPHYLAXIS
     Dosage: UNK
     Route: 065
     Dates: start: 20101115, end: 20101214
  55. LEVOFLOXACIN [Concomitant]
     Indication: INFECTION PROPHYLAXIS
     Dosage: UNK
     Route: 065
     Dates: start: 20101115, end: 20101123
  56. VORICONAZOLE [Concomitant]
     Indication: PROPHYLAXIS
     Dosage: UNK
     Route: 065
     Dates: start: 20101124
  57. VORICONAZOLE [Concomitant]
     Indication: MENINGITIS
  58. VORICONAZOLE [Concomitant]
     Indication: CANDIDA INFECTION
  59. VORICONAZOLE [Concomitant]
     Indication: ASPERGILLUS INFECTION
  60. CLARITHROMYCIN [Concomitant]
     Indication: INFECTION PROPHYLAXIS
     Dosage: UNK
     Route: 065
     Dates: start: 20101127

REACTIONS (12)
  - Chronic graft versus host disease [Unknown]
  - Pneumonia [Recovered/Resolved]
  - Meningitis [Recovered/Resolved]
  - Liver disorder [Recovered/Resolved]
  - Liver disorder [Recovered/Resolved]
  - Liver disorder [Recovered/Resolved]
  - Pyrexia [Recovered/Resolved]
  - Cytomegalovirus infection [Recovered/Resolved]
  - Pyrexia [Recovered/Resolved]
  - Candida infection [Recovered/Resolved]
  - Aspergillus infection [Recovered/Resolved]
  - Pyrexia [Recovered/Resolved]
